FAERS Safety Report 7759756-2 (Version None)
Quarter: 2011Q3

REPORT INFORMATION
  Report Type: 
  Country: None (occurrence: None)
  Receive Date: 20110919
  Receipt Date: 20110826
  Transmission Date: 20111222
  Serious: Yes (Death)
  Sender: FDA-Public Use
  Company Number: PHHY2011DK76409

PATIENT
  Sex: Female
  Weight: 75 kg

DRUGS (4)
  1. DICLOXACILLIN [Suspect]
     Indication: INFECTION
     Dosage: 500 MG, TID
     Route: 048
     Dates: start: 20110713
  2. FUROSEMIDE [Suspect]
     Dosage: 40 MG, BID
     Route: 048
  3. GENTAMICIN [Suspect]
     Dosage: 240 MG, UNK
     Route: 042
     Dates: start: 20110726
  4. CEFUROXIME SODIUM [Suspect]
     Dosage: 1500 MG, BID
     Dates: start: 20110726

REACTIONS (1)
  - RENAL FAILURE ACUTE [None]
